FAERS Safety Report 7508593-2 (Version None)
Quarter: 2011Q2

REPORT INFORMATION
  Report Type: 
  Country: None (occurrence: None)
  Receive Date: 20110527
  Receipt Date: 20101012
  Transmission Date: 20111010
  Serious: No
  Sender: FDA-Public Use
  Company Number: A0887424A

PATIENT
  Age: 52 Year
  Sex: Female
  Weight: 61 kg

DRUGS (16)
  1. LASIX [Concomitant]
     Route: 048
  2. TYLENOL W/ CODEINE [Concomitant]
     Route: 048
  3. DIPHENHYDRAMINE HCL [Concomitant]
     Route: 048
  4. VITAMIN D [Concomitant]
  5. FLOLAN [Suspect]
     Indication: PULMONARY ARTERIAL HYPERTENSION
     Route: 042
  6. HEPARIN LOCK-FLUSH [Concomitant]
  7. CELEXA [Concomitant]
     Route: 048
  8. KDUR [Concomitant]
     Route: 048
  9. NEURONTIN [Concomitant]
     Route: 048
  10. ZOFRAN [Concomitant]
     Route: 048
  11. SPIRONOLACTONE [Concomitant]
     Route: 048
  12. COUMADIN [Concomitant]
     Route: 065
  13. FLOLAN [Suspect]
     Indication: PULMONARY ARTERIAL HYPERTENSION
     Dosage: 85NGKM UNKNOWN
     Route: 042
     Dates: start: 20070312
  14. FLAGYL [Concomitant]
     Route: 048
  15. FERROUS SULFATE TAB [Concomitant]
     Route: 042
  16. PREVACID [Concomitant]

REACTIONS (4)
  - PAIN IN EXTREMITY [None]
  - RASH [None]
  - PAIN IN JAW [None]
  - DIARRHOEA [None]
